FAERS Safety Report 21155684 (Version 2)
Quarter: 2022Q4

REPORT INFORMATION
  Report Type: Report from Study
  Country: CA (occurrence: CA)
  Receive Date: 20220801
  Receipt Date: 20221116
  Transmission Date: 20230112
  Serious: Yes (Other)
  Sender: FDA-Public Use
  Company Number: CA-BAYER-2022A045784

PATIENT
  Age: 61 Year
  Sex: Female
  Weight: 84 kg

DRUGS (9)
  1. NAPROXEN [Suspect]
     Active Substance: NAPROXEN
     Route: 065
  2. OMALIZUMAB [Suspect]
     Active Substance: OMALIZUMAB
     Indication: Chronic spontaneous urticaria
     Dosage: 300 MG
     Route: 058
  3. OMALIZUMAB [Suspect]
     Active Substance: OMALIZUMAB
     Indication: Chronic spontaneous urticaria
     Dosage: 150 MG
     Route: 058
  4. OMALIZUMAB [Suspect]
     Active Substance: OMALIZUMAB
     Indication: Chronic spontaneous urticaria
     Dosage: 300 MG
     Route: 058
  5. OMALIZUMAB [Suspect]
     Active Substance: OMALIZUMAB
     Indication: Chronic spontaneous urticaria
     Dosage: 300 MG, Q2WK
     Route: 058
  6. OMALIZUMAB [Suspect]
     Active Substance: OMALIZUMAB
     Indication: Chronic spontaneous urticaria
     Dosage: UNK
     Route: 058
  7. OMALIZUMAB [Suspect]
     Active Substance: OMALIZUMAB
     Indication: Chronic spontaneous urticaria
     Dosage: 300 MG
     Route: 058
  8. OMALIZUMAB [Suspect]
     Active Substance: OMALIZUMAB
     Indication: Chronic spontaneous urticaria
     Dosage: UNK
     Route: 058
  9. HYDROXYZINE [Concomitant]
     Active Substance: HYDROXYZINE HYDROCHLORIDE
     Indication: Product used for unknown indication
     Dosage: 25 MG, BID
     Route: 065

REACTIONS (28)
  - Abdominal pain [Recovered/Resolved]
  - Abdominal pain lower [Recovered/Resolved]
  - Paraesthesia [Recovered/Resolved]
  - Drug hypersensitivity [Recovered/Resolved]
  - Product dose omission issue [Recovered/Resolved]
  - Quality of life decreased [Recovered/Resolved]
  - Breast cancer [Recovered/Resolved]
  - Ear swelling [Recovered/Resolved]
  - Urticaria [Recovered/Resolved]
  - Pruritus [Recovered/Resolved]
  - Headache [Recovered/Resolved]
  - Papule [Recovered/Resolved]
  - Therapeutic response decreased [Recovered/Resolved]
  - Product availability issue [Recovered/Resolved]
  - Inappropriate schedule of product administration [Recovered/Resolved]
  - Incorrect dose administered [Recovered/Resolved]
  - Skin plaque [Recovered/Resolved]
  - Erythema [Recovered/Resolved]
  - Illness [Recovered/Resolved]
  - Oropharyngeal pain [Recovered/Resolved]
  - Stress [Recovered/Resolved]
  - Product container issue [Recovered/Resolved]
  - Skin lesion [Recovered/Resolved]
  - Blood pressure abnormal [Recovered/Resolved]
  - Bone pain [Recovered/Resolved]
  - Joint stiffness [Recovered/Resolved]
  - Body temperature abnormal [Recovered/Resolved]
  - Therapy partial responder [Recovered/Resolved]
